FAERS Safety Report 4629032-5 (Version None)
Quarter: 2005Q2

REPORT INFORMATION
  Report Type: 
  Country: None (occurrence: None)
  Receive Date: 20050405
  Receipt Date: 20050405
  Transmission Date: 20051028
  Serious: Yes (Hospitalization)
  Sender: FDA-Public Use
  Company Number: None

PATIENT
  Sex: Male
  Weight: 15.1 kg

DRUGS (13)
  1. NEUPOGEN [Suspect]
     Indication: POST PROCEDURAL COMPLICATION
     Dosage: 75MCG SUBQ EVERYDAY
     Route: 058
     Dates: start: 20050124
  2. NEUPOGEN [Suspect]
     Indication: WHITE BLOOD CELL COUNT DECREASED
     Dosage: 75MCG SUBQ EVERYDAY
     Route: 058
     Dates: start: 20050124
  3. ETOPOSIDE [Concomitant]
  4. CYCLOPHOSPHAMIDE [Concomitant]
  5. VINCRISTINE [Concomitant]
  6. BLEOMYCIN [Concomitant]
  7. DOXORUBICIN HCL [Concomitant]
  8. [REDMOSPME [Concomitant]
  9. PREDNISOLONE [Concomitant]
  10. DESONIDE CREAM [Concomitant]
  11. DOCUSATE SODIUM [Concomitant]
  12. PIMECROLIMUS CREAM [Concomitant]
  13. CEFTRIAXONE [Concomitant]

REACTIONS (8)
  - COLD SWEAT [None]
  - DYSSTASIA [None]
  - FALL [None]
  - HYPOTENSION [None]
  - HYPOTONIA [None]
  - POSTICTAL STATE [None]
  - UNRESPONSIVE TO PAIN STIMULI [None]
  - VOMITING [None]
